FAERS Safety Report 14503149 (Version 16)
Quarter: 2023Q2

REPORT INFORMATION
  Report Type: Spontaneous
  Country: US (occurrence: US)
  Receive Date: 20180208
  Receipt Date: 20230410
  Transmission Date: 20230721
  Serious: Yes (Hospitalization, Other)
  Sender: FDA-Public Use
  Company Number: US-PFIZER INC-2018052239

PATIENT
  Age: 77 Year
  Sex: Female
  Weight: 62.14 kg

DRUGS (9)
  1. XELJANZ XR [Interacting]
     Active Substance: TOFACITINIB CITRATE
     Indication: Rheumatoid arthritis
     Dosage: 11 MG
     Dates: start: 2014
  2. XELJANZ XR [Interacting]
     Active Substance: TOFACITINIB CITRATE
     Dosage: 11 MG
  3. XELJANZ XR [Interacting]
     Active Substance: TOFACITINIB CITRATE
     Dosage: 11 MG, 1X/DAY
     Route: 048
     Dates: start: 2017
  4. MINERALS\VITAMINS [Concomitant]
     Active Substance: MINERALS\VITAMINS
     Indication: Vitamin supplementation
     Dosage: 1 DF, 1X/DAY
  5. FOLIC ACID [Concomitant]
     Active Substance: FOLIC ACID
     Indication: Rheumatoid arthritis
     Dosage: 800 UG, 1X/DAY
     Route: 048
     Dates: start: 2016
  6. HYDROXYCHLOROQUINE [Concomitant]
     Active Substance: HYDROXYCHLOROQUINE
     Indication: Rheumatoid arthritis
     Dosage: 200 MG, 1X/DAY
     Route: 048
  7. OMEPRAZOLE [Concomitant]
     Active Substance: OMEPRAZOLE
     Indication: Rheumatoid arthritis
     Dosage: 20 MG, 1X/DAY
     Route: 048
     Dates: start: 201801
  8. PREDNISONE [Concomitant]
     Active Substance: PREDNISONE
     Indication: Rheumatoid arthritis
     Dosage: 5 MG, ALTERNATE DAY (EVERY OTHER DAY)
     Route: 048
  9. VITAMIN D3 [Concomitant]
     Active Substance: CHOLECALCIFEROL
     Indication: Supplementation therapy
     Dosage: 1000 IU, 1X/DAY
     Route: 048
     Dates: start: 2015

REACTIONS (25)
  - Abdominal discomfort [Unknown]
  - Hip arthroplasty [Unknown]
  - Rheumatoid arthritis [Unknown]
  - Limb asymmetry [Not Recovered/Not Resolved]
  - Therapeutic product effect incomplete [Unknown]
  - Illness [Unknown]
  - Dry mouth [Not Recovered/Not Resolved]
  - Fungal infection [Unknown]
  - Headache [Not Recovered/Not Resolved]
  - Urinary tract infection [Unknown]
  - Arthralgia [Unknown]
  - Sputum increased [Unknown]
  - Jaw clicking [Unknown]
  - Infection [Unknown]
  - Drug interaction [Unknown]
  - Appetite disorder [Unknown]
  - Oropharyngeal pain [Unknown]
  - Dyspnoea [Unknown]
  - Colon injury [Not Recovered/Not Resolved]
  - Musculoskeletal discomfort [Unknown]
  - Gait disturbance [Unknown]
  - Spinal disorder [Unknown]
  - Disturbance in attention [Unknown]
  - Memory impairment [Unknown]
  - Arthropathy [Unknown]

NARRATIVE: CASE EVENT DATE: 20180301
